FAERS Safety Report 5242263-9 (Version None)
Quarter: 2007Q1

REPORT INFORMATION
  Report Type: 
  Country: None (occurrence: None)
  Receive Date: 20070216
  Receipt Date: 20070216
  Transmission Date: 20070707
  Serious: No
  Sender: FDA-Public Use
  Company Number: None

PATIENT
  Age: 46 Year
  Sex: Female

DRUGS (4)
  1. ZITHROMAX [Suspect]
     Indication: INFECTION
     Dosage: 500 GM X1 IV
     Route: 042
  2. ROCEPHIN [Suspect]
     Indication: INFECTION
     Dosage: 1 GM X1 IV
     Route: 042
  3. KILETRA [Concomitant]
  4. SINGULAIR [Concomitant]

REACTIONS (2)
  - PRURITUS [None]
  - URTICARIA [None]
